FAERS Safety Report 26207099 (Version 1)
Quarter: 2025Q4

REPORT INFORMATION
  Report Type: Spontaneous
  Country: BD (occurrence: BD)
  Receive Date: 20251229
  Receipt Date: 20251229
  Transmission Date: 20260117
  Serious: Yes (Other)
  Sender: RANBAXY
  Company Number: BD-SUN PHARMACEUTICAL INDUSTRIES LTD-2025RR-543473

PATIENT
  Age: 65 Year
  Sex: Male

DRUGS (5)
  1. CARBOPLATIN [Suspect]
     Active Substance: CARBOPLATIN
     Indication: Lung adenocarcinoma
     Dosage: UNK
     Route: 040
     Dates: end: 20220611
  2. PEMETREXED [Suspect]
     Active Substance: PEMETREXED
     Indication: Chemotherapy
     Dosage: UNK
     Route: 040
     Dates: start: 20230320, end: 20230605
  3. PACLITAXEL [Suspect]
     Active Substance: PACLITAXEL
     Indication: Lung adenocarcinoma
     Dosage: UNK
     Route: 040
     Dates: end: 20220611
  4. DENOSUMAB [Suspect]
     Active Substance: DENOSUMAB
     Indication: Chemotherapy
     Dosage: UNK
     Route: 040
     Dates: end: 20220611
  5. ATEZOLIZUMAB [Suspect]
     Active Substance: ATEZOLIZUMAB
     Indication: Lung adenocarcinoma
     Dosage: UNK
     Route: 040
     Dates: start: 20230320, end: 20230605

REACTIONS (2)
  - Drug ineffective [Unknown]
  - Central nervous system lesion [Unknown]
